FAERS Safety Report 15042612 (Version 6)
Quarter: 2023Q2

REPORT INFORMATION
  Report Type: Report from Study
  Country: BR (occurrence: BR)
  Receive Date: 20180621
  Receipt Date: 20230505
  Transmission Date: 20230722
  Serious: Yes (Hospitalization)
  Sender: FDA-Public Use
  Company Number: BR-BIOGEN-2018BI00597844

PATIENT
  Sex: Female
  Weight: 46 kg

DRUGS (18)
  1. AVONEX PEN [Suspect]
     Active Substance: INTERFERON BETA-1A
     Indication: Multiple sclerosis
     Route: 050
     Dates: start: 201104
  2. AVONEX PEN [Suspect]
     Active Substance: INTERFERON BETA-1A
     Route: 050
     Dates: start: 20130101
  3. AVONEX PEN [Suspect]
     Active Substance: INTERFERON BETA-1A
     Route: 050
     Dates: start: 201805
  4. AVONEX PEN [Suspect]
     Active Substance: INTERFERON BETA-1A
     Route: 050
     Dates: start: 2012
  5. AVONEX [Suspect]
     Active Substance: INTERFERON BETA-1A
     Indication: Multiple sclerosis
     Route: 050
     Dates: start: 2010
  6. AVONEX [Suspect]
     Active Substance: INTERFERON BETA-1A
  7. AVONEX [Suspect]
     Active Substance: INTERFERON BETA-1A
  8. AVONEX [Suspect]
     Active Substance: INTERFERON BETA-1A
  9. AVONEX [Suspect]
     Active Substance: INTERFERON BETA-1A
  10. AVONEX [Suspect]
     Active Substance: INTERFERON BETA-1A
  11. AVONEX [Suspect]
     Active Substance: INTERFERON BETA-1A
  12. AVONEX [Suspect]
     Active Substance: INTERFERON BETA-1A
  13. AVONEX [Suspect]
     Active Substance: INTERFERON BETA-1A
  14. AVONEX [Suspect]
     Active Substance: INTERFERON BETA-1A
  15. AVONEX [Suspect]
     Active Substance: INTERFERON BETA-1A
  16. AVONEX [Suspect]
     Active Substance: INTERFERON BETA-1A
  17. AVONEX [Suspect]
     Active Substance: INTERFERON BETA-1A
  18. GABAPENTIN [Concomitant]
     Active Substance: GABAPENTIN
     Indication: Pain
     Route: 050
     Dates: start: 2010

REACTIONS (10)
  - Deep vein thrombosis [Recovered/Resolved]
  - Femur fracture [Recovered/Resolved with Sequelae]
  - Fall [Recovered/Resolved]
  - Influenza [Unknown]
  - Motor dysfunction [Unknown]
  - Balance disorder [Not Recovered/Not Resolved]
  - Multiple sclerosis relapse [Recovered/Resolved]
  - Asthenia [Unknown]
  - Fatigue [Unknown]
  - Arthralgia [Not Recovered/Not Resolved]

NARRATIVE: CASE EVENT DATE: 20140101
